FAERS Safety Report 7994569-8 (Version None)
Quarter: 2011Q4

REPORT INFORMATION
  Report Type: 
  Country: None (occurrence: None)
  Receive Date: 20111220
  Receipt Date: 20111216
  Transmission Date: 20120403
  Serious: Yes (Other)
  Sender: FDA-Public Use
  Company Number: US-PFIZER INC-2011306839

PATIENT
  Sex: Female

DRUGS (2)
  1. LEVOXYL [Suspect]
     Dosage: 50 UG, UNK
  2. LEVOXYL [Suspect]
     Dosage: 100 UG, UNK

REACTIONS (8)
  - TRI-IODOTHYRONINE DECREASED [None]
  - NAIL DISORDER [None]
  - CONFUSIONAL STATE [None]
  - THYROXINE INCREASED [None]
  - DRY SKIN [None]
  - WEIGHT INCREASED [None]
  - MEMORY IMPAIRMENT [None]
  - ALOPECIA [None]
